FAERS Safety Report 18575622 (Version 1)
Quarter: 2020Q4

REPORT INFORMATION
  Report Type: Spontaneous
  Country: US (occurrence: US)
  Receive Date: 20201202
  Receipt Date: 20201202
  Transmission Date: 20210114
  Serious: No
  Sender: FDA-Public Use
  Company Number: None

PATIENT
  Age: 74 Year
  Sex: Male

DRUGS (1)
  1. SACUBITRIL/VALSARTAN (SACUBITRIL 49MG/VALSARTAN 51MG TAB) [Suspect]
     Active Substance: SACUBITRIL\VALSARTAN
     Indication: CARDIAC FAILURE CONGESTIVE
     Dosage: ?          OTHER DOSE:49/51 MG;?
     Route: 048
     Dates: start: 20170706, end: 20171026

REACTIONS (1)
  - Cough [None]

NARRATIVE: CASE EVENT DATE: 20170719
